APPROVED DRUG PRODUCT: TRENTAL
Active Ingredient: PENTOXIFYLLINE
Strength: 400MG **Federal Register determination that product was not discontinued or withdrawn for safety or effectiveness reasons**
Dosage Form/Route: TABLET, EXTENDED RELEASE;ORAL
Application: N018631 | Product #001
Applicant: VALIDUS PHARMACEUTICALS LLC
Approved: Aug 30, 1984 | RLD: Yes | RS: No | Type: DISCN